FAERS Safety Report 11447559 (Version 1)
Quarter: 2015Q3

REPORT INFORMATION
  Report Type: Spontaneous
  Country: US (occurrence: US)
  Receive Date: 20150831
  Receipt Date: 20150831
  Transmission Date: 20151125
  Serious: Yes (Other)
  Sender: FDA-Public Use
  Company Number: US-ELI_LILLY_AND_COMPANY-US200903004209

PATIENT
  Age: 54 Year
  Sex: Female

DRUGS (5)
  1. LAMICTAL [Concomitant]
     Active Substance: LAMOTRIGINE
  2. NEURONTIN [Concomitant]
     Active Substance: GABAPENTIN
  3. CYMBALTA [Suspect]
     Active Substance: DULOXETINE HYDROCHLORIDE
     Indication: BIPOLAR DISORDER
     Dosage: 90 MG, DAILY (1/D)
     Dates: start: 2005
  4. CYMBALTA [Suspect]
     Active Substance: DULOXETINE HYDROCHLORIDE
     Dosage: 60 MG, DAILY (1/D)
  5. ATIVAN [Concomitant]
     Active Substance: LORAZEPAM

REACTIONS (6)
  - Pollakiuria [Not Recovered/Not Resolved]
  - Dehydration [Recovered/Resolved]
  - Agitation [Not Recovered/Not Resolved]
  - Glaucoma [Unknown]
  - Visual impairment [Not Recovered/Not Resolved]
  - Restlessness [Not Recovered/Not Resolved]
